FAERS Safety Report 5272135-5 (Version None)
Quarter: 2007Q1

REPORT INFORMATION
  Report Type: 
  Country: None (occurrence: None)
  Receive Date: 20070319
  Receipt Date: 20070308
  Transmission Date: 20070707
  Serious: Yes (Death)
  Sender: FDA-Public Use
  Company Number: 07H-163-0312277-00

PATIENT
  Age: 28 Day
  Sex: Male
  Weight: 1.0161 kg

DRUGS (3)
  1. DEXTROSE 10% [Suspect]
     Indication: DRUG USE FOR UNKNOWN INDICATION
     Dosage: NOT REPORTED, NOT REPORTED, INTRAVENOUS
     Route: 042
     Dates: start: 20070131, end: 20070131
  2. CALCIUM GLUCONATE [Suspect]
     Indication: DRUG USE FOR UNKNOWN INDICATION
     Dosage: NOT REPORTED, NOT REPORTED, INTRAVENOUS
     Route: 042
     Dates: start: 20070131, end: 20070131
  3. HEPARIN [Suspect]
     Indication: DRUG USE FOR UNKNOWN INDICATION
     Dosage: NOT REPORTED, NOT REPORTED, INTRAVENOUS
     Route: 042
     Dates: start: 20070131, end: 20070131

REACTIONS (5)
  - AIR EMBOLISM [None]
  - BRADYCARDIA [None]
  - CARDIO-RESPIRATORY ARREST [None]
  - CRYING [None]
  - ELECTROCARDIOGRAM CHANGE [None]
